FAERS Safety Report 6786196-5 (Version None)
Quarter: 2010Q2

REPORT INFORMATION
  Report Type: 
  Country: None (occurrence: None)
  Receive Date: 20100623
  Receipt Date: 20100609
  Transmission Date: 20101027
  Serious: Yes (Hospitalization)
  Sender: FDA-Public Use
  Company Number: US-ELI_LILLY_AND_COMPANY-US201001003362

PATIENT
  Sex: Female

DRUGS (12)
  1. FORTEO [Suspect]
     Indication: OSTEOPOROSIS
     Dosage: 20 UG, DAILY (1/D)
     Dates: start: 20090801
  2. SYNTHROID [Concomitant]
     Dosage: 0.1 MG, UNK
  3. OXYBUTIN [Concomitant]
     Dosage: 15 MG, DAILY (1/D)
  4. DICLOFEN [Concomitant]
     Dosage: 75 MG, DAILY (1/D)
  5. SIMVASTATIN [Concomitant]
     Dosage: 20 MG, UNK
  6. VALIUM [Concomitant]
     Dosage: 5 MG, EACH EVENING
  7. DARVOCET [Concomitant]
     Dosage: UNK, AS NEEDED
  8. MULTI-VITAMIN [Concomitant]
     Dosage: UNK, DAILY (1/D)
  9. MINERALS NOS [Concomitant]
     Dosage: UNK, DAILY (1/D)
  10. CALCIUM CARBONATE [Concomitant]
     Dosage: 600 MG, 2/D
  11. VITAMIN D [Concomitant]
     Dosage: 3000 IU, DAILY (1/D)
  12. DIAZEPAM [Concomitant]

REACTIONS (9)
  - ASTHENIA [None]
  - CONTUSION [None]
  - DEPRESSED MOOD [None]
  - DIZZINESS [None]
  - FATIGUE [None]
  - HEART RATE DECREASED [None]
  - HYPOAESTHESIA [None]
  - PAIN [None]
  - POST PROCEDURAL DISCOMFORT [None]
